FAERS Safety Report 5874045-9 (Version None)
Quarter: 2008Q3

REPORT INFORMATION
  Report Type: 
  Country: None (occurrence: None)
  Receive Date: 20080829
  Receipt Date: 20080821
  Transmission Date: 20090109
  Serious: Yes (Other)
  Sender: FDA-Public Use
  Company Number: 2008SP017209

PATIENT
  Age: 38 Year
  Sex: Female

DRUGS (1)
  1. INTRON A [Suspect]
     Indication: T-CELL LYMPHOMA

REACTIONS (1)
  - LACTIC ACIDOSIS [None]
